FAERS Safety Report 10080951 (Version 2)
Quarter: 2014Q2

REPORT INFORMATION
  Report Type: Spontaneous
  Country: JP (occurrence: JP)
  Receive Date: 20140416
  Receipt Date: 20140423
  Transmission Date: 20141212
  Serious: Yes (Hospitalization, Other)
  Sender: FDA-Public Use
  Company Number: JP-SA-2014SA047367

PATIENT
  Age: 50 Year
  Sex: Female

DRUGS (3)
  1. DELLEGRA [Suspect]
     Indication: RHINITIS ALLERGIC
     Dosage: 2 TABLETS
     Route: 048
     Dates: start: 201403
  2. POLARAMINE [Concomitant]
     Indication: RHINITIS ALLERGIC
  3. AMLODIN [Concomitant]
     Indication: HYPERTENSION

REACTIONS (3)
  - Loss of consciousness [Recovered/Resolved]
  - Facial bones fracture [Unknown]
  - Malaise [Unknown]
